FAERS Safety Report 4372018-9 (Version None)
Quarter: 2004Q2

REPORT INFORMATION
  Report Type: 
  Country: None (occurrence: None)
  Receive Date: 20040601
  Receipt Date: 20040526
  Transmission Date: 20050107
  Serious: Yes (Death)
  Sender: FDA-Public Use
  Company Number: KII-1999-0001918

PATIENT
  Sex: Male

DRUGS (1)
  1. OXYCONTIN [Suspect]
     Indication: CANCER PAIN
     Dosage: 800 MG, Q3H

REACTIONS (3)
  - CARCINOMA [None]
  - CONDITION AGGRAVATED [None]
  - CONSTIPATION [None]
